FAERS Safety Report 19134345 (Version 3)
Quarter: 2021Q2

REPORT INFORMATION
  Report Type: Spontaneous
  Country: BR (occurrence: BR)
  Receive Date: 20210414
  Receipt Date: 20210428
  Transmission Date: 20210717
  Serious: Yes (Other)
  Sender: FDA-Public Use
  Company Number: NVSC2021BR076095

PATIENT
  Age: 1 Year
  Sex: Female
  Weight: 8.35 kg

DRUGS (7)
  1. NUSINERSEN [Concomitant]
     Active Substance: NUSINERSEN
     Indication: PRODUCT USED FOR UNKNOWN INDICATION
     Dosage: UNK
     Route: 065
  2. PREDNISOLONE. [Concomitant]
     Active Substance: PREDNISOLONE
     Indication: PRODUCT USED FOR UNKNOWN INDICATION
     Dosage: 1 MG/KG, PER DAY
     Route: 065
  3. ZOLGENSMA [Suspect]
     Active Substance: ONASEMNOGENE ABEPARVOVEC-XIOI
     Indication: PRODUCT USED FOR UNKNOWN INDICATION
     Dosage: UNK, ONCE/SINGLE
     Route: 042
     Dates: start: 20210322, end: 20210322
  4. PREDNISOLONE. [Concomitant]
     Active Substance: PREDNISOLONE
     Dosage: 1.5 MG/KG, PER DAY
     Route: 065
     Dates: start: 20210326
  5. FUROSEMIDE. [Concomitant]
     Active Substance: FUROSEMIDE
     Indication: PRODUCT USED FOR UNKNOWN INDICATION
     Dosage: 08 MG, QD
     Route: 042
  6. AD TIL [Concomitant]
     Indication: PRODUCT USED FOR UNKNOWN INDICATION
     Dosage: 10.000 UNK, QD
     Route: 048
  7. VITAMIN D [Concomitant]
     Active Substance: VITAMIN D NOS
     Indication: PRODUCT USED FOR UNKNOWN INDICATION
     Dosage: 2.000 UNK, QD
     Route: 048

REACTIONS (9)
  - Haematuria [Not Recovered/Not Resolved]
  - Haemolysis [Recovered/Resolved]
  - Thrombotic microangiopathy [Not Recovered/Not Resolved]
  - Hypertension [Recovered/Resolved]
  - Oliguria [Recovering/Resolving]
  - Chromaturia [Unknown]
  - Hypotension [Recovered/Resolved]
  - Haemolytic uraemic syndrome [Not Recovered/Not Resolved]
  - Pyuria [Recovered/Resolved]

NARRATIVE: CASE EVENT DATE: 20210329
